FAERS Safety Report 12651073 (Version 1)
Quarter: 2016Q3

REPORT INFORMATION
  Report Type: Spontaneous
  Country: US (occurrence: None)
  Receive Date: 20160812
  Receipt Date: 20160812
  Transmission Date: 20161109
  Serious: Yes (Other)
  Sender: FDA-Public Use
  Company Number: None

PATIENT
  Age: 28 Year
  Sex: Female
  Weight: 90.27 kg

DRUGS (1)
  1. GILDESS FE 1/20 [Suspect]
     Active Substance: ETHINYL ESTRADIOL\NORETHINDRONE ACETATE
     Indication: CONTRACEPTION
     Route: 048
     Dates: start: 20160717, end: 20160805

REACTIONS (3)
  - Menstrual disorder [None]
  - Pregnancy on oral contraceptive [None]
  - Weight increased [None]

NARRATIVE: CASE EVENT DATE: 20160803
